FAERS Safety Report 18897839 (Version 1)
Quarter: 2021Q1

REPORT INFORMATION
  Report Type: Spontaneous
  Country: US (occurrence: US)
  Receive Date: 20210212
  Receipt Date: 20210212
  Transmission Date: 20210420
  Serious: Yes (Hospitalization)
  Sender: FDA-Public Use
  Company Number: None

PATIENT
  Age: 43 Year
  Sex: Female
  Weight: 95.85 kg

DRUGS (4)
  1. HEPARIN [Suspect]
     Active Substance: HEPARIN SODIUM
     Indication: THROMBOSIS PROPHYLAXIS
     Route: 058
     Dates: start: 20210119, end: 20210120
  2. METOPROLOL. [Concomitant]
     Active Substance: METOPROLOL
     Dates: start: 20210119
  3. FAMOTIDINE. [Concomitant]
     Active Substance: FAMOTIDINE
     Dates: start: 20210119
  4. ONDANSETRON [Concomitant]
     Active Substance: ONDANSETRON
     Dates: start: 20210119

REACTIONS (6)
  - Hypotension [None]
  - Haematocrit decreased [None]
  - Haemoperitoneum [None]
  - Thrombosis [None]
  - Urine output increased [None]
  - Post procedural haemorrhage [None]

NARRATIVE: CASE EVENT DATE: 20210120
